FAERS Safety Report 10339720 (Version 2)
Quarter: 2014Q3

REPORT INFORMATION
  Report Type: Spontaneous
  Country: FR (occurrence: FR)
  Receive Date: 20140724
  Receipt Date: 20140827
  Transmission Date: 20150326
  Serious: Yes (Other)
  Sender: FDA-Public Use
  Company Number: FR-ASTRAZENECA-2014SE51784

PATIENT
  Age: 27264 Day
  Sex: Female
  Weight: 50 kg

DRUGS (3)
  1. LIDOCAINE AGUETTANT (NON AZ PRODUCT) [Suspect]
     Active Substance: LIDOCAINE HYDROCHLORIDE
     Dosage: BY ENT ROUTE, 200 MG/20 ML ONCE/SINGLE ADMINISTRATION
     Route: 051
     Dates: start: 20140515, end: 20140515
  2. XYLOCAINE [Suspect]
     Active Substance: LIDOCAINE HYDROCHLORIDE
     Route: 048
     Dates: start: 20140515, end: 20140515
  3. XYLOCAINE [Suspect]
     Active Substance: LIDOCAINE HYDROCHLORIDE
     Route: 002
     Dates: start: 20140515, end: 20140515

REACTIONS (4)
  - Aphasia [Recovered/Resolved]
  - Haemorrhage [Unknown]
  - Malaise [Recovered/Resolved]
  - Incorrect dose administered [Recovered/Resolved]

NARRATIVE: CASE EVENT DATE: 20140515
